FAERS Safety Report 9626772 (Version 1)
Quarter: 2013Q4

REPORT INFORMATION
  Report Type: Spontaneous
  Country: US (occurrence: US)
  Receive Date: 20131016
  Receipt Date: 20131016
  Transmission Date: 20140711
  Serious: Yes (Hospitalization)
  Sender: FDA-Public Use
  Company Number: US-GLAXOSMITHKLINE-A1045620A

PATIENT
  Age: 39 Year
  Sex: Female

DRUGS (2)
  1. ARIXTRA [Suspect]
     Indication: PULMONARY THROMBOSIS
     Dosage: 7.5MG UNKNOWN
     Dates: start: 20130916
  2. ZOFRAN [Suspect]
     Indication: NAUSEA
     Dosage: 8MG UNKNOWN
     Dates: start: 20130916

REACTIONS (5)
  - Cerebrovascular accident [Unknown]
  - Meningitis [Unknown]
  - Lung carcinoma cell type unspecified stage III [Unknown]
  - Chemotherapy [Unknown]
  - Radiotherapy [Unknown]
